FAERS Safety Report 18384927 (Version 2)
Quarter: 2022Q4

REPORT INFORMATION
  Report Type: Spontaneous
  Country: US (occurrence: US)
  Receive Date: 20201015
  Receipt Date: 20221003
  Transmission Date: 20230113
  Serious: Yes (Hospitalization, Other)
  Sender: FDA-Public Use
  Company Number: US-CELLTRION INC.-2020US028761

PATIENT

DRUGS (17)
  1. TRUXIMA [Suspect]
     Active Substance: RITUXIMAB-ABBS
     Indication: Rheumatoid arthritis
     Dosage: FIRST TREATMENT AS TWO DOSES (1ST DOSE)
     Dates: start: 2018
  2. TRUXIMA [Suspect]
     Active Substance: RITUXIMAB-ABBS
     Dosage: FIRST TREATMENT AS TWO DOSES (2ND DOSE)
     Dates: start: 2018
  3. TRUXIMA [Suspect]
     Active Substance: RITUXIMAB-ABBS
     Dosage: SECOND TREATMENT OF TRUXIMA WHICH LASTED FOR 6 MONTHS (UNKNOWN DATE)
  4. TRUXIMA [Suspect]
     Active Substance: RITUXIMAB-ABBS
     Dosage: THIRD TREATMENT
     Dates: start: 2020
  5. RITUXAN [Suspect]
     Active Substance: RITUXIMAB
     Indication: Rheumatoid arthritis
     Dosage: UNK
     Dates: start: 2018
  6. DIGOXIN [Concomitant]
     Active Substance: DIGOXIN
     Dosage: (1.25)
  7. COREG [Concomitant]
     Active Substance: CARVEDILOL
  8. ENTRESTO [Concomitant]
     Active Substance: SACUBITRIL\VALSARTAN
  9. SPIRONOLACTONE [Concomitant]
     Active Substance: SPIRONOLACTONE
  10. ASPIRIN [Concomitant]
     Active Substance: ASPIRIN
     Dosage: 325 MG
  11. FUROSEMIDE [Concomitant]
     Active Substance: FUROSEMIDE
  12. METFORMIN [Concomitant]
     Active Substance: METFORMIN HYDROCHLORIDE
     Dosage: 500 MG
  13. BIOTIN [Concomitant]
     Active Substance: BIOTIN
  14. IBUPROFEN [Concomitant]
     Active Substance: IBUPROFEN
  15. TYLENOL [Concomitant]
     Active Substance: ACETAMINOPHEN
  16. TRAMADOL [Concomitant]
     Active Substance: TRAMADOL
  17. DICLOFENAC [Concomitant]
     Active Substance: DICLOFENAC

REACTIONS (4)
  - Cardiac pacemaker replacement [Unknown]
  - Diabetes mellitus [Unknown]
  - Unevaluable event [Unknown]
  - Drug ineffective [Unknown]
